FAERS Safety Report 19535873 (Version 1)
Quarter: 2021Q3

REPORT INFORMATION
  Report Type: Spontaneous
  Country: US (occurrence: US)
  Receive Date: 20210713
  Receipt Date: 20210713
  Transmission Date: 20211014
  Serious: Yes (Hospitalization)
  Sender: FDA-Public Use
  Company Number: None

PATIENT
  Age: 57 Year
  Sex: Male

DRUGS (6)
  1. GLIP/METORM [Concomitant]
  2. HUMIRA [Suspect]
     Active Substance: ADALIMUMAB
     Indication: PSORIASIS
     Route: 058
     Dates: start: 20160318
  3. SIMVASTATIN. [Concomitant]
     Active Substance: SIMVASTATIN
  4. FENOFIBRATE. [Concomitant]
     Active Substance: FENOFIBRATE
  5. TYLENOL [Concomitant]
     Active Substance: ACETAMINOPHEN
  6. NIACIN. [Concomitant]
     Active Substance: NIACIN

REACTIONS (2)
  - Road traffic accident [None]
  - Therapy interrupted [None]

NARRATIVE: CASE EVENT DATE: 202103
